FAERS Safety Report 5842610-0 (Version None)
Quarter: 2008Q3

REPORT INFORMATION
  Report Type: 
  Country: None (occurrence: None)
  Receive Date: 20080812
  Receipt Date: 20080730
  Transmission Date: 20090109
  Serious: Yes (Hospitalization)
  Sender: FDA-Public Use
  Company Number: US-ELI_LILLY_AND_COMPANY-US200807006364

PATIENT
  Sex: Female

DRUGS (1)
  1. FORTEO [Suspect]
     Dates: start: 20060101

REACTIONS (3)
  - FLUID REPLACEMENT [None]
  - MICTURITION URGENCY [None]
  - PHARMACEUTICAL PRODUCT COMPLAINT [None]
